FAERS Safety Report 19987161 (Version 1)
Quarter: 2021Q4

REPORT INFORMATION
  Report Type: Spontaneous
  Country: AU (occurrence: AU)
  Receive Date: 20211022
  Receipt Date: 20211022
  Transmission Date: 20220303
  Serious: Yes (Hospitalization, Other)
  Sender: FDA-Public Use
  Company Number: AU-GLAXOSMITHKLINE-AU2021APC213642

PATIENT
  Age: 73 Year
  Sex: Female

DRUGS (1)
  1. NUCALA [Suspect]
     Active Substance: MEPOLIZUMAB
     Indication: Asthma
     Dosage: UNK
     Route: 058
     Dates: start: 20200723, end: 20200723

REACTIONS (13)
  - Pain [Unknown]
  - Pleuritic pain [Unknown]
  - Haemoptysis [Recovered/Resolved]
  - Pulmonary embolism [Recovered/Resolved with Sequelae]
  - Inflammation [Unknown]
  - C-reactive protein increased [Unknown]
  - Fibrin D dimer increased [Unknown]
  - Pulmonary oedema [Not Recovered/Not Resolved]
  - Cardiac failure congestive [Unknown]
  - Asthma [Recovering/Resolving]
  - Dyspnoea [Unknown]
  - Malaise [Unknown]
  - Therapeutic product effect incomplete [Unknown]

NARRATIVE: CASE EVENT DATE: 20200727
